FAERS Safety Report 7506588-6 (Version None)
Quarter: 2011Q2

REPORT INFORMATION
  Report Type: 
  Country: None (occurrence: None)
  Receive Date: 20110526
  Receipt Date: 20110509
  Transmission Date: 20111010
  Serious: No
  Sender: FDA-Public Use
  Company Number: US-B.I. PHARMACEUTICALS,INC./RIDGEFIELD-2011-BP-07504BP

PATIENT
  Age: 86 Year
  Sex: Male

DRUGS (5)
  1. PRADAXA [Suspect]
     Indication: ATRIAL FIBRILLATION
     Dosage: 150 MG
     Route: 048
  2. METOPROLOL TARTRATE [Concomitant]
     Dosage: 25 MG
  3. NEXIUM [Concomitant]
     Dosage: 40 MG
  4. FUROSEMIDE [Concomitant]
     Dosage: 40 MG
  5. ALLOPURINOL [Concomitant]
     Dosage: 300 MG

REACTIONS (3)
  - BLOOD CREATINE INCREASED [None]
  - PROTHROMBIN TIME ABNORMAL [None]
  - CONTUSION [None]
